FAERS Safety Report 25030933 (Version 1)
Quarter: 2025Q1

REPORT INFORMATION
  Report Type: Spontaneous
  Country: FR (occurrence: FR)
  Receive Date: 20250303
  Receipt Date: 20250303
  Transmission Date: 20250409
  Serious: Yes (Other)
  Sender: REGENERON
  Company Number: FR-BAYER-2025A028985

PATIENT
  Sex: Female

DRUGS (1)
  1. EYLEA [Suspect]
     Active Substance: AFLIBERCEPT
     Indication: Product used for unknown indication
     Dates: start: 202502

REACTIONS (2)
  - Amaurosis [Unknown]
  - Visual impairment [Unknown]

NARRATIVE: CASE EVENT DATE: 20250201
